FAERS Safety Report 12798289 (Version 2)
Quarter: 2016Q4

REPORT INFORMATION
  Report Type: Report from Study
  Country: US (occurrence: US)
  Receive Date: 20160930
  Receipt Date: 20161021
  Transmission Date: 20170207
  Serious: Yes (Hospitalization, Other)
  Sender: FDA-Public Use
  Company Number: US-JNJFOC-20160712185

PATIENT
  Age: 82 Year
  Sex: Male

DRUGS (12)
  1. DILTIAZEM. [Suspect]
     Active Substance: DILTIAZEM
     Indication: BLOOD PRESSURE MEASUREMENT
     Route: 048
  2. ALLOPURINOL. [Concomitant]
     Active Substance: ALLOPURINOL
     Route: 048
  3. CIPRO [Concomitant]
     Active Substance: CIPROFLOXACIN HYDROCHLORIDE
     Route: 048
  4. CYANOCOBALAMIN. [Concomitant]
     Active Substance: CYANOCOBALAMIN
  5. IMBRUVICA [Suspect]
     Active Substance: IBRUTINIB
     Indication: WALDENSTROM^S MACROGLOBULINAEMIA
     Route: 048
     Dates: start: 20150914
  6. SPIRIVA [Concomitant]
     Active Substance: TIOTROPIUM BROMIDE MONOHYDRATE
     Route: 048
  7. DILTIAZEM. [Suspect]
     Active Substance: DILTIAZEM
     Indication: BLOOD PRESSURE MEASUREMENT
     Route: 048
  8. POTASSIUM CHLORIDE. [Concomitant]
     Active Substance: POTASSIUM CHLORIDE
     Route: 048
  9. IMBRUVICA [Suspect]
     Active Substance: IBRUTINIB
     Indication: PARAPROTEINAEMIA
     Route: 048
     Dates: start: 20150914
  10. PRADAXA [Interacting]
     Active Substance: DABIGATRAN ETEXILATE MESYLATE
     Indication: ATRIAL FIBRILLATION
  11. FUROSEMIDE. [Suspect]
     Active Substance: FUROSEMIDE
     Indication: BLOOD PRESSURE MEASUREMENT
     Route: 048
  12. ALBUTEROL SULFATE. [Concomitant]
     Active Substance: ALBUTEROL SULFATE
     Route: 065

REACTIONS (18)
  - Asthenia [Recovered/Resolved]
  - Drug interaction [Unknown]
  - Blood lactic acid abnormal [Recovered/Resolved]
  - Performance status decreased [Recovering/Resolving]
  - Fall [Recovered/Resolved]
  - Fatigue [Recovering/Resolving]
  - Malignant melanoma [Recovered/Resolved]
  - Off label use [Not Recovered/Not Resolved]
  - Haematuria [Unknown]
  - Squamous cell carcinoma of skin [Unknown]
  - Blood urea increased [Recovered/Resolved]
  - Weight decreased [Recovering/Resolving]
  - White blood cell count abnormal [Recovered/Resolved]
  - Product use issue [Not Recovered/Not Resolved]
  - Haemorrhage [Unknown]
  - Blood creatinine increased [Recovered/Resolved]
  - Platelet count decreased [Not Recovered/Not Resolved]
  - Hypotension [Recovered/Resolved]

NARRATIVE: CASE EVENT DATE: 2015
